FAERS Safety Report 7585512-4 (Version None)
Quarter: 2011Q2

REPORT INFORMATION
  Report Type: 
  Country: None (occurrence: None)
  Receive Date: 20110628
  Receipt Date: 20110628
  Transmission Date: 20111010
  Serious: No
  Sender: FDA-Public Use
  Company Number: None

PATIENT
  Sex: Female
  Weight: 81.6475 kg

DRUGS (1)
  1. SUBOXONE [Suspect]
     Dosage: 1 1 SL DAILY UNDER TONGUE
     Route: 060

REACTIONS (4)
  - LEUKOPLAKIA [None]
  - SWOLLEN TONGUE [None]
  - GLOSSODYNIA [None]
  - DISCOMFORT [None]
